FAERS Safety Report 18022047 (Version 1)
Quarter: 2020Q3

REPORT INFORMATION
  Report Type: Spontaneous
  Country: IT (occurrence: IT)
  Receive Date: 20200714
  Receipt Date: 20200714
  Transmission Date: 20201103
  Serious: Yes (Hospitalization)
  Sender: FDA-Public Use
  Company Number: IT-ROCHE-1195014

PATIENT
  Age: 63 Year
  Sex: Female

DRUGS (2)
  1. TOCILIZUMAB. [Suspect]
     Active Substance: TOCILIZUMAB
     Indication: RHEUMATOID ARTHRITIS
     Route: 042
     Dates: start: 20100201, end: 20121126
  2. METHOTREXATE. [Concomitant]
     Active Substance: METHOTREXATE
     Route: 030
     Dates: start: 20070101, end: 20120211

REACTIONS (1)
  - Encephalitis viral [Recovered/Resolved]

NARRATIVE: CASE EVENT DATE: 20121204
